FAERS Safety Report 21218821 (Version 1)
Quarter: 2022Q3

REPORT INFORMATION
  Report Type: Report from Study
  Country: US (occurrence: US)
  Receive Date: 20220816
  Receipt Date: 20220816
  Transmission Date: 20221026
  Serious: Yes (Hospitalization)
  Sender: FDA-Public Use
  Company Number: US-JAZZ-2022-US-025740

PATIENT
  Age: 51 Year
  Sex: Male
  Weight: 104.4 kg

DRUGS (12)
  1. LURBINECTEDIN [Suspect]
     Active Substance: LURBINECTEDIN
     Indication: Neoplasm malignant
     Dosage: 3.2 MILLIGRAM/SQ. METER, Q3W
     Route: 042
     Dates: start: 20220630, end: 20220719
  2. ERGOCALCIFEROL [Concomitant]
     Active Substance: ERGOCALCIFEROL
     Dosage: 1 CAPSULE ONCE WEEKLY
     Route: 048
     Dates: start: 20220401
  3. GABAPENTIN [Concomitant]
     Active Substance: GABAPENTIN
     Dosage: 600 MILLIGRAM, NIGHTLY
     Route: 048
     Dates: start: 20220609
  4. LACTULOSE [Concomitant]
     Active Substance: LACTULOSE
     Dosage: 15 MILLILITER, Q8H PRN
     Route: 048
     Dates: start: 20210819
  5. MELATONIN [Concomitant]
     Active Substance: MELATONIN
     Dosage: 5 MILLIGRAM, NIGHTLY
     Route: 048
     Dates: start: 20220120
  6. METHOCARBAMOL [Concomitant]
     Active Substance: METHOCARBAMOL
     Dosage: 500 MILLIGRAM, Q12H PRN
     Route: 048
     Dates: start: 20220517
  7. MS CONTIN [Concomitant]
     Active Substance: MORPHINE SULFATE
     Dosage: 15 MILLIGRAM, BID
     Route: 048
     Dates: start: 20220629
  8. MORPHINE SULFATE [Concomitant]
     Active Substance: MORPHINE SULFATE
     Dosage: 7.5 MILLIGRAM, PRN Q4H
     Route: 048
     Dates: start: 20220629
  9. NALOXONE [Concomitant]
     Active Substance: NALOXONE
     Dosage: 4 MILLIGRAM, PRN
     Route: 045
     Dates: start: 20220629
  10. POLYETHYLENE GLYCOLS [Concomitant]
     Active Substance: POLYETHYLENE GLYCOLS
     Dosage: 17 GRAM, QD
     Route: 048
     Dates: start: 20220629
  11. SENNA [Concomitant]
     Active Substance: SENNA LEAF\SENNOSIDES\SENNOSIDES A AND B
     Dosage: 4 DOSAGE FORM, BID
     Route: 048
     Dates: start: 20220629
  12. TRAMADOL [Concomitant]
     Active Substance: TRAMADOL
     Dosage: 50 MILLIGRAM, Q8H, PRN
     Route: 048
     Dates: start: 20220614

REACTIONS (1)
  - Urinary tract infection [Recovered/Resolved]

NARRATIVE: CASE EVENT DATE: 20220731
